FAERS Safety Report 6976982-0 (Version None)
Quarter: 2010Q3

REPORT INFORMATION
  Report Type: 
  Country: None (occurrence: None)
  Receive Date: 20100910
  Receipt Date: 20100902
  Transmission Date: 20110219
  Serious: Yes (Other)
  Sender: FDA-Public Use
  Company Number: US-WYE-H08553409

PATIENT
  Sex: Female

DRUGS (20)
  1. TYGACIL [Suspect]
     Dosage: UNKNOWN
     Dates: start: 20090101
  2. SINGULAIR [Concomitant]
     Indication: HYPERSENSITIVITY
  3. PREDNISONE [Concomitant]
  4. XOLAIR [Concomitant]
     Dosage: EVERY 2 WEEKS
  5. XOPENEX [Concomitant]
     Dosage: 45 MCG AS NEEDED
  6. IPRATROPIUM BROMIDE [Concomitant]
     Dosage: REPS EVERY 4-6 HOURS
  7. ALBUTEROL [Concomitant]
     Dosage: UNKNOWN
  8. XYZAL [Concomitant]
  9. NORVASC [Concomitant]
  10. HYDRODIURIL [Concomitant]
  11. ATACAND [Concomitant]
  12. LIPITOR [Concomitant]
  13. PREVACID [Concomitant]
  14. PREMARIN [Concomitant]
  15. K-DUR [Concomitant]
  16. ACTONEL [Concomitant]
  17. FOLIC ACID [Concomitant]
  18. CALCIUM WITH VITAMIN D [Concomitant]
  19. PREMARIN [Concomitant]
  20. ADVAIR DISKUS 100/50 [Concomitant]
     Indication: ASTHMA
     Dosage: INHALER; 2 PUFFS TWICE DAILY

REACTIONS (1)
  - STEVENS-JOHNSON SYNDROME [None]
